FAERS Safety Report 19455650 (Version 2)
Quarter: 2021Q2

REPORT INFORMATION
  Report Type: Report from Study
  Country: US (occurrence: US)
  Receive Date: 20210623
  Receipt Date: 20210629
  Transmission Date: 20210717
  Serious: Yes (Hospitalization)
  Sender: FDA-Public Use
  Company Number: US-AMGEN-USACT2021095171

PATIENT
  Age: 72 Year
  Sex: Female
  Weight: 54.45 kg

DRUGS (9)
  1. ATEZOLIZUMAB. [Suspect]
     Active Substance: ATEZOLIZUMAB
     Indication: NON-SMALL CELL LUNG CANCER STAGE IV
     Dosage: 1200 MILLIGRAM
     Route: 042
     Dates: start: 20210512
  2. AMG 510 [Suspect]
     Active Substance: AMG-510
     Indication: NON-SMALL CELL LUNG CANCER STAGE IV
     Dosage: 120 MILLIGRAM
     Route: 048
     Dates: start: 20210512
  3. AMG 510 [Suspect]
     Active Substance: AMG-510
     Indication: K-RAS GENE MUTATION
  4. ATEZOLIZUMAB. [Suspect]
     Active Substance: ATEZOLIZUMAB
     Indication: K-RAS GENE MUTATION
  5. XOPENEX [Concomitant]
     Active Substance: LEVALBUTEROL HYDROCHLORIDE
     Dosage: 1 UNK
     Route: 050
     Dates: start: 20210507
  6. IBUPROFEN. [Concomitant]
     Active Substance: IBUPROFEN
     Dosage: 20 MILLILITER
     Route: 048
     Dates: start: 202101
  7. BOOST [Concomitant]
     Active Substance: DIETARY SUPPLEMENT
     Dosage: 1 UNK
     Route: 048
     Dates: start: 2021
  8. LIPITOR [Concomitant]
     Active Substance: ATORVASTATIN CALCIUM
     Dosage: 40 MILLIGRAM
     Route: 048
     Dates: start: 202102
  9. SPIRIVA [Concomitant]
     Active Substance: TIOTROPIUM BROMIDE MONOHYDRATE
     Dosage: 2 UNK
     Route: 050
     Dates: start: 202102

REACTIONS (1)
  - Pleural effusion [Not Recovered/Not Resolved]

NARRATIVE: CASE EVENT DATE: 20210618
